FAERS Safety Report 13755439 (Version 3)
Quarter: 2017Q3

REPORT INFORMATION
  Report Type: Report from Study
  Country: GB (occurrence: GB)
  Receive Date: 20170714
  Receipt Date: 20170816
  Transmission Date: 20171127
  Serious: Yes (Other)
  Sender: FDA-Public Use
  Company Number: GB-ALEXION PHARMACEUTICALS INC.-A201707909

PATIENT
  Age: 30 Year
  Sex: Female

DRUGS (10)
  1. SOLIRIS [Suspect]
     Active Substance: ECULIZUMAB
     Dosage: 600 MG, QW
     Route: 065
     Dates: start: 20090107
  2. SOLIRIS [Suspect]
     Active Substance: ECULIZUMAB
     Dosage: 1800 MG, UNK
     Route: 065
     Dates: start: 20170620, end: 20170719
  3. SOLIRIS [Suspect]
     Active Substance: ECULIZUMAB
     Dosage: 1500 MG, Q2W
     Route: 065
     Dates: start: 20160816, end: 20170606
  4. SOLIRIS [Suspect]
     Active Substance: ECULIZUMAB
     Dosage: 900 MG, Q2W
     Route: 065
     Dates: start: 20090107, end: 20140107
  5. SOLIRIS [Suspect]
     Active Substance: ECULIZUMAB
     Dosage: 1200 MG, Q2W
     Route: 065
     Dates: start: 20140123, end: 20160804
  6. SOLIRIS [Suspect]
     Active Substance: ECULIZUMAB
     Dosage: 1200 MG, Q2W
     Route: 065
     Dates: start: 20140123, end: 20140402
  7. SOLIRIS [Suspect]
     Active Substance: ECULIZUMAB
     Dosage: 1500 MG, Q2W
     Route: 065
     Dates: start: 20140417, end: 20170606
  8. AMOXICILLIN. [Concomitant]
     Active Substance: AMOXICILLIN
     Indication: URINARY TRACT INFECTION
     Dosage: UNK
     Route: 048
  9. SOLIRIS [Suspect]
     Active Substance: ECULIZUMAB
     Dosage: 900 MG, SINGLE
     Route: 065
     Dates: start: 20170724, end: 20170724
  10. SOLIRIS [Suspect]
     Active Substance: ECULIZUMAB
     Indication: PAROXYSMAL NOCTURNAL HAEMOGLOBINURIA
     Dosage: UNK
     Route: 065

REACTIONS (3)
  - Exposure during pregnancy [Not Recovered/Not Resolved]
  - Incorrect dose administered [Unknown]
  - Haemoglobin decreased [Recovered/Resolved]

NARRATIVE: CASE EVENT DATE: 20140123
